FAERS Safety Report 9605917 (Version 1)
Quarter: 2013Q4

REPORT INFORMATION
  Report Type: Spontaneous
  Country: US (occurrence: US)
  Receive Date: 20131008
  Receipt Date: 20131008
  Transmission Date: 20140711
  Serious: Yes (Other)
  Sender: FDA-Public Use
  Company Number: CHPA2013US015134

PATIENT
  Age: 75 Year
  Sex: Male

DRUGS (1)
  1. PRIVATE LABEL [Suspect]
     Indication: SMOKING CESSATION THERAPY
     Dosage: 1 DF, UNK
     Dates: start: 201309, end: 201309

REACTIONS (1)
  - Lung neoplasm malignant [Unknown]
